FAERS Safety Report 8400494-0 (Version None)
Quarter: 2012Q2

REPORT INFORMATION
  Report Type: 
  Country: None (occurrence: None)
  Receive Date: 20120531
  Receipt Date: 20120523
  Transmission Date: 20120825
  Serious: Yes (Hospitalization)
  Sender: FDA-Public Use
  Company Number: US-NOVOPROD-352333

PATIENT
  Age: 78 Year
  Sex: Female
  Weight: 51.701 kg

DRUGS (1)
  1. LEVEMIR [Suspect]
     Indication: TYPE 2 DIABETES MELLITUS
     Dosage: 20 U, BID
     Route: 058

REACTIONS (3)
  - DEHYDRATION [None]
  - BLOOD GLUCOSE INCREASED [None]
  - DEVICE FAILURE [None]
